FAERS Safety Report 17923867 (Version 1)
Quarter: 2020Q2

REPORT INFORMATION
  Report Type: Spontaneous
  Country: US (occurrence: US)
  Receive Date: 20200622
  Receipt Date: 20200622
  Transmission Date: 20200714
  Serious: Yes (Other)
  Sender: FDA-Public Use
  Company Number: None

PATIENT
  Sex: Male

DRUGS (2)
  1. ROSUVASTATIN. [Suspect]
     Active Substance: ROSUVASTATIN
  2. ATORVASTATIN [Suspect]
     Active Substance: ATORVASTATIN

REACTIONS (4)
  - Pain [None]
  - Musculoskeletal stiffness [None]
  - Arthralgia [None]
  - Gait inability [None]
